FAERS Safety Report 13091878 (Version 2)
Quarter: 2018Q1

REPORT INFORMATION
  Report Type: Report from Study
  Country: US (occurrence: US)
  Receive Date: 20170106
  Receipt Date: 20180207
  Transmission Date: 20180508
  Serious: Yes (Other)
  Sender: FDA-Public Use
  Company Number: US-ROCHE-1875559

PATIENT
  Sex: Female

DRUGS (1)
  1. LUCENTIS [Suspect]
     Active Substance: RANIBIZUMAB
     Indication: NEOVASCULAR AGE-RELATED MACULAR DEGENERATION
     Dosage: DOSE UNKNOWN ;ONGOING: UNKNOWN
     Route: 050

REACTIONS (6)
  - Blindness [Unknown]
  - Haemorrhage [Unknown]
  - Visual impairment [Not Recovered/Not Resolved]
  - Drug ineffective [Unknown]
  - Retinal oedema [Unknown]
  - Dry eye [Unknown]
